FAERS Safety Report 5726587-4 (Version None)
Quarter: 2008Q2

REPORT INFORMATION
  Report Type: 
  Country: None (occurrence: None)
  Receive Date: 20080502
  Receipt Date: 20080421
  Transmission Date: 20081010
  Serious: Yes (Other)
  Sender: FDA-Public Use
  Company Number: US-JNJFOC-20080406018

PATIENT
  Sex: Female
  Weight: 65.77 kg

DRUGS (10)
  1. DURAGESIC-100 [Suspect]
     Route: 062
  2. DURAGESIC-100 [Suspect]
     Route: 062
  3. DURAGESIC-100 [Suspect]
     Route: 062
  4. DURAGESIC-100 [Suspect]
     Indication: BACK PAIN
     Route: 062
  5. LIDODERM [Concomitant]
     Indication: PAIN
     Route: 062
  6. LORTAB [Concomitant]
     Indication: BREAKTHROUGH PAIN
     Route: 048
  7. HYZAAR [Concomitant]
     Indication: BLOOD PRESSURE
     Dosage: 100-25 MG
     Route: 048
  8. XALATAN [Concomitant]
     Indication: GLAUCOMA
     Dosage: 1 DROP IN EACH EYE AT BEDTIME
     Route: 047
  9. NEURONTIN [Concomitant]
     Indication: NEURALGIA
     Route: 048
  10. MOBIC [Concomitant]
     Indication: INFLAMMATION
     Route: 048

REACTIONS (7)
  - ARTHRITIS INFECTIVE [None]
  - DRUG DOSE OMISSION [None]
  - INAPPROPRIATE SCHEDULE OF DRUG ADMINISTRATION [None]
  - INFECTION [None]
  - SOMNOLENCE [None]
  - SPINAL DISORDER [None]
  - WITHDRAWAL SYNDROME [None]
